FAERS Safety Report 8046104-6 (Version None)
Quarter: 2012Q1

REPORT INFORMATION
  Report Type: 
  Country: None (occurrence: None)
  Receive Date: 20120113
  Receipt Date: 20120109
  Transmission Date: 20120608
  Serious: No
  Sender: FDA-Public Use
  Company Number: US-PFIZER INC-2012006721

PATIENT
  Sex: Male
  Weight: 102 kg

DRUGS (3)
  1. LYRICA [Suspect]
     Indication: PAIN
     Dosage: 50 MG, 3X/DAY
     Route: 048
     Dates: start: 20070101
  2. CLONAZEPAM [Concomitant]
     Indication: INSOMNIA
     Dosage: UNK
  3. LYRICA [Suspect]
     Indication: HEADACHE

REACTIONS (3)
  - FEELING DRUNK [None]
  - DIZZINESS [None]
  - FEELING ABNORMAL [None]
